FAERS Safety Report 4452344-5 (Version None)
Quarter: 2004Q3

REPORT INFORMATION
  Report Type: 
  Country: None (occurrence: None)
  Receive Date: 20040915
  Receipt Date: 20040831
  Transmission Date: 20050211
  Serious: Yes (Hospitalization)
  Sender: FDA-Public Use
  Company Number: K200401356

PATIENT
  Age: 5 Month
  Sex: Female
  Weight: 6.3 kg

DRUGS (6)
  1. SEPTRA [Suspect]
     Indication: PNEUMOCYSTIS CARINII INFECTION
     Dosage: 20 MG/KG BODY WEIGHT, QD, INTRAVENOUS
     Route: 042
  2. GANCICLOVIR SODIUM [Concomitant]
  3. AMPICILLIN W/SULBACTAM (AMPICILLIN SULBACTAM) [Concomitant]
  4. ISONIAZID [Concomitant]
  5. RIFAMPICIN [Concomitant]
  6. GLUCOSE (GLUCOSE) [Concomitant]

REACTIONS (6)
  - CANDIDIASIS [None]
  - CONVULSION [None]
  - CYTOMEGALOVIRUS INFECTION [None]
  - HYPERINSULINISM [None]
  - HYPOGLYCAEMIA [None]
  - LABORATORY TEST ABNORMAL [None]
